FAERS Safety Report 9779676 (Version 2)
Quarter: 2013Q4

REPORT INFORMATION
  Report Type: Spontaneous
  Country: DK (occurrence: DK)
  Receive Date: 20131223
  Receipt Date: 20131223
  Transmission Date: 20140711
  Serious: Yes (Hospitalization)
  Sender: FDA-Public Use
  Company Number: DK-GALDERMA-DK13003817

PATIENT
  Age: 22 Year
  Sex: Female

DRUGS (2)
  1. EPIDUO [Suspect]
     Indication: ACNE
     Dosage: 0.1%-2.5%
     Route: 061
     Dates: start: 20130214, end: 20130216
  2. TETRALYSAL [Suspect]
     Indication: ACNE
     Route: 048
     Dates: start: 20130214, end: 201306

REACTIONS (2)
  - Swelling face [Recovered/Resolved]
  - Dermatitis allergic [Recovered/Resolved]
